FAERS Safety Report 25828547 (Version 4)
Quarter: 2025Q4

REPORT INFORMATION
  Report Type: Other
  Country: US (occurrence: US)
  Receive Date: 20250922
  Receipt Date: 20251231
  Transmission Date: 20260118
  Serious: No
  Sender: TRAVERE THERAPEUTICS
  Company Number: US-TRAVERE-2025TVT01453

PATIENT
  Age: 43 Year
  Sex: Female

DRUGS (1)
  1. FILSPARI [Suspect]
     Active Substance: SPARSENTAN
     Indication: IgA nephropathy
     Dosage: LOT NUMBER: 1979026, EXPIRY DATE: 31-AUG-2027
     Route: 048
     Dates: start: 20250225

REACTIONS (3)
  - Rash pruritic [Recovering/Resolving]
  - Hypotension [Unknown]
  - Drug effect less than expected [Unknown]

NARRATIVE: CASE EVENT DATE: 20251001
